FAERS Safety Report 4985857-8 (Version None)
Quarter: 2006Q2

REPORT INFORMATION
  Report Type: 
  Country: None (occurrence: None)
  Receive Date: 20060428
  Receipt Date: 20050916
  Transmission Date: 20061013
  Serious: No
  Sender: FDA-Public Use
  Company Number: US-GLAXOSMITHKLINE-A0574526A

PATIENT
  Age: 68 Year
  Sex: Male

DRUGS (4)
  1. ZOFRAN [Suspect]
     Indication: PROPHYLAXIS OF NAUSEA AND VOMITING
     Dosage: 8MG AS REQUIRED
     Route: 048
     Dates: start: 20050830, end: 20050908
  2. CISPLATIN [Concomitant]
  3. FLUOROURACIL [Concomitant]
     Route: 065
  4. RADIATION [Concomitant]

REACTIONS (1)
  - SWELLING FACE [None]
